FAERS Safety Report 18868878 (Version 1)
Quarter: 2021Q1

REPORT INFORMATION
  Report Type: Spontaneous
  Country: US (occurrence: US)
  Receive Date: 20210210
  Receipt Date: 20210210
  Transmission Date: 20210420
  Serious: Yes (Other)
  Sender: FDA-Public Use
  Company Number: US-SPECGX-T202100191

PATIENT
  Sex: Male

DRUGS (2)
  1. H.P. ACTHAR [Suspect]
     Active Substance: CORTICOTROPIN
     Indication: PRODUCT USED FOR UNKNOWN INDICATION
     Dosage: UNK
     Route: 065
     Dates: end: 20201228
  2. OXYCODONE [Suspect]
     Active Substance: OXYCODONE
     Indication: JOINT INJURY
     Dosage: UNK
     Route: 065

REACTIONS (5)
  - Decreased appetite [Unknown]
  - Nausea [Unknown]
  - Withdrawal syndrome [Unknown]
  - Joint injury [Unknown]
  - Diarrhoea [Unknown]
